FAERS Safety Report 22138626 (Version 2)
Quarter: 2023Q2

REPORT INFORMATION
  Report Type: Spontaneous
  Country: US (occurrence: US)
  Receive Date: 20230326
  Receipt Date: 20230520
  Transmission Date: 20230722
  Serious: No
  Sender: FDA-Public Use
  Company Number: US-002147023-NVSC2023US064865

PATIENT
  Sex: Female

DRUGS (1)
  1. XIIDRA [Suspect]
     Active Substance: LIFITEGRAST
     Indication: Product used for unknown indication
     Dosage: 50 MILLIGRAM PER MILLILITRE, BID
     Route: 047
     Dates: start: 20230316

REACTIONS (2)
  - Vision blurred [Recovered/Resolved]
  - Product use complaint [Unknown]
